FAERS Safety Report 7814418-8 (Version None)
Quarter: 2011Q4

REPORT INFORMATION
  Report Type: 
  Country: None (occurrence: None)
  Receive Date: 20111014
  Receipt Date: 20111005
  Transmission Date: 20120403
  Serious: Yes (Other)
  Sender: FDA-Public Use
  Company Number: PHHY2011JP74809

PATIENT
  Age: 70 Year
  Sex: Male

DRUGS (2)
  1. ZOMETA [Suspect]
     Indication: METASTASES TO BONE
     Dates: start: 20080401, end: 20100301
  2. LOCAL ANAESTHETICS [Concomitant]

REACTIONS (15)
  - AURICULAR SWELLING [None]
  - LEUKOCYTOSIS [None]
  - DYSKINESIA [None]
  - C-REACTIVE PROTEIN INCREASED [None]
  - BONE EROSION [None]
  - OSTEONECROSIS OF JAW [None]
  - PERIODONTAL DISEASE [None]
  - DENTAL FISTULA [None]
  - ARTHRITIS BACTERIAL [None]
  - PAIN IN JAW [None]
  - EXPOSED BONE IN JAW [None]
  - SOFT TISSUE INFLAMMATION [None]
  - WHITE BLOOD CELL COUNT INCREASED [None]
  - TOOTH INJURY [None]
  - STREPTOCOCCUS TEST POSITIVE [None]
